FAERS Safety Report 6510226-9 (Version None)
Quarter: 2009Q4

REPORT INFORMATION
  Report Type: 
  Country: None (occurrence: None)
  Receive Date: 20091221
  Receipt Date: 20091221
  Transmission Date: 20100525
  Serious: Yes (Hospitalization)
  Sender: FDA-Public Use
  Company Number: None

PATIENT
  Sex: Female
  Weight: 83.8 kg

DRUGS (2)
  1. CYTARABINE [Suspect]
     Dosage: 45600 MG
  2. ELSPAR [Suspect]
     Dosage: 22800 IU

REACTIONS (7)
  - ACIDOSIS [None]
  - BACK PAIN [None]
  - DYSPNOEA [None]
  - HYPERTENSION [None]
  - HYPOGLYCAEMIA [None]
  - PAIN IN EXTREMITY [None]
  - REFUSAL OF TREATMENT BY PATIENT [None]
